FAERS Safety Report 5447443-5 (Version None)
Quarter: 2007Q3

REPORT INFORMATION
  Report Type: 
  Country: None (occurrence: None)
  Receive Date: 20070910
  Receipt Date: 20070829
  Transmission Date: 20080115
  Serious: Yes (Hospitalization)
  Sender: FDA-Public Use
  Company Number: PL-AMGEN-UK239561

PATIENT
  Sex: Female

DRUGS (3)
  1. PANITUMUMAB [Suspect]
     Indication: COLORECTAL CANCER
     Route: 042
     Dates: start: 20070425, end: 20070801
  2. FLUOROURACIL INJ [Suspect]
  3. OXALIPLATIN [Suspect]

REACTIONS (3)
  - DEHYDRATION [None]
  - HYPOMAGNESAEMIA [None]
  - SEPSIS [None]
